FAERS Safety Report 5027223-5 (Version None)
Quarter: 2006Q2

REPORT INFORMATION
  Report Type: 
  Country: None (occurrence: None)
  Receive Date: 20060615
  Receipt Date: 20060609
  Transmission Date: 20061013
  Serious: Yes (Other)
  Sender: FDA-Public Use
  Company Number: IE-BOEHRINGER INGELHEIM PHARMACEUTICALS, INC.-2006-UK-02779IE

PATIENT
  Age: 70 Year
  Sex: Female

DRUGS (4)
  1. MICARDIS [Suspect]
  2. MOBIC [Concomitant]
  3. BISOCOR [Concomitant]
  4. ASPIRIN [Concomitant]

REACTIONS (2)
  - CYSTITIS [None]
  - INFLUENZA LIKE ILLNESS [None]
